FAERS Safety Report 19528071 (Version 1)
Quarter: 2021Q3

REPORT INFORMATION
  Report Type: Spontaneous
  Country: US (occurrence: US)
  Receive Date: 20210713
  Receipt Date: 20210713
  Transmission Date: 20211014
  Serious: No
  Sender: FDA-Public Use
  Company Number: US-AUROBINDO-AUR-APL-2021-007449

PATIENT
  Sex: Female

DRUGS (1)
  1. CEFPROZIL TABLETS USP 250MG [Suspect]
     Active Substance: CEFPROZIL
     Indication: SINUSITIS
     Dosage: 250 MILLIGRAM, TWO TIMES A DAY
     Route: 048
     Dates: start: 20210106, end: 20210118

REACTIONS (3)
  - Product odour abnormal [Unknown]
  - Therapy interrupted [Unknown]
  - Product substitution issue [Unknown]

NARRATIVE: CASE EVENT DATE: 20210106
